FAERS Safety Report 5084961-6 (Version None)
Quarter: 2006Q3

REPORT INFORMATION
  Report Type: 
  Country: None (occurrence: None)
  Receive Date: 20060821
  Receipt Date: 20060811
  Transmission Date: 20061208
  Serious: Yes (Other)
  Sender: FDA-Public Use
  Company Number: CA-ABBOTT-06P-028-0340477-00

PATIENT
  Age: 25 Year
  Sex: Female

DRUGS (1)
  1. BIAXIN [Suspect]
     Indication: SKIN INFECTION
     Route: 048

REACTIONS (5)
  - ARTHRALGIA [None]
  - MALAISE [None]
  - SERUM SICKNESS [None]
  - URTICARIA [None]
  - URTICARIA GENERALISED [None]
